FAERS Safety Report 9365826 (Version 1)
Quarter: 2013Q2

REPORT INFORMATION
  Report Type: Spontaneous
  Country: US (occurrence: None)
  Receive Date: 20130624
  Receipt Date: 20130624
  Transmission Date: 20140414
  Serious: No
  Sender: FDA-Public Use
  Company Number: None

PATIENT
  Age: 74 Year
  Sex: Male
  Weight: 110 kg

DRUGS (1)
  1. ZOLEDRONIC ACID (ZOLENDRONATE, ZOMETA) [Suspect]

REACTIONS (2)
  - Renal failure [None]
  - Osteonecrosis of jaw [None]
